FAERS Safety Report 4918757-X (Version None)
Quarter: 2006Q1

REPORT INFORMATION
  Report Type: 
  Country: None (occurrence: None)
  Receive Date: 20060222
  Receipt Date: 20060213
  Transmission Date: 20060701
  Serious: Yes (Other)
  Sender: FDA-Public Use
  Company Number: 2006UW02409

PATIENT
  Age: 85 Year
  Sex: Male
  Weight: 81.2 kg

DRUGS (6)
  1. PULMICORT RESPULES [Suspect]
     Indication: ASTHMA
     Route: 055
     Dates: start: 20050101
  2. PULMICORT RESPULES [Suspect]
     Indication: DYSPNOEA
     Route: 055
     Dates: start: 20050101
  3. PULMICORT RESPULES [Suspect]
     Indication: ASBESTOSIS
     Route: 055
     Dates: start: 20050101
  4. DUONEB [Suspect]
     Route: 055
     Dates: start: 20050101
  5. MULTIPLE HEART MEDICATIONS [Concomitant]
  6. MULTIPLE ASTHMA MEDICATIONS [Concomitant]

REACTIONS (2)
  - TOOTH DISORDER [None]
  - TOOTH INFECTION [None]
